FAERS Safety Report 5542351-3 (Version None)
Quarter: 2007Q4

REPORT INFORMATION
  Report Type: 
  Country: None (occurrence: None)
  Receive Date: 20071129
  Receipt Date: 20070424
  Transmission Date: 20080405
  Serious: Yes (Other)
  Sender: FDA-Public Use
  Company Number: US200702001016

PATIENT
  Age: 37 Year
  Sex: Female
  Weight: 149.7 kg

DRUGS (5)
  1. ZYPREXA [Suspect]
     Dosage: 10 MG, 20 MG
     Dates: start: 20020101, end: 20050101
  2. ARIPIPRAZOLE [Concomitant]
  3. QUETIAPINE [Concomitant]
  4. FLUOXETINE [Concomitant]
  5. MEDROXYPROGESTERONE [Concomitant]

REACTIONS (6)
  - BLOOD PRESSURE INCREASED [None]
  - DIABETES MELLITUS [None]
  - DIABETIC COMA [None]
  - DIABETIC KETOACIDOSIS [None]
  - HYPERGLYCAEMIA [None]
  - PANCREATITIS [None]
